FAERS Safety Report 4631870-X (Version None)
Quarter: 2005Q2

REPORT INFORMATION
  Report Type: 
  Country: None (occurrence: None)
  Receive Date: 20050411
  Receipt Date: 20050404
  Transmission Date: 20051028
  Serious: Yes (Other)
  Sender: FDA-Public Use
  Company Number: PHEH2005US03916

PATIENT

DRUGS (2)
  1. LAMISIL [Suspect]
     Route: 065
  2. WELLBUTRIN [Suspect]
     Route: 048

REACTIONS (1)
  - CONVULSION [None]
